FAERS Safety Report 22226448 (Version 8)
Quarter: 2024Q1

REPORT INFORMATION
  Report Type: Report from Study
  Country: CL (occurrence: CL)
  Receive Date: 20230419
  Receipt Date: 20240129
  Transmission Date: 20240410
  Serious: Yes (Other)
  Sender: FDA-Public Use
  Company Number: CL-JNJFOC-20230425469

PATIENT
  Age: 44 Year
  Sex: Female

DRUGS (6)
  1. SIMPONI [Suspect]
     Active Substance: GOLIMUMAB
     Indication: Psoriatic arthropathy
     Dosage: 50.00 MG / 0.50 ML
     Route: 058
     Dates: start: 20210324
  2. PFIZER-BIONTECH COVID-19 VACCINE [Suspect]
     Active Substance: TOZINAMERAN
     Indication: COVID-19 prophylaxis
     Dates: start: 20230320
  3. METHOTREXATE [Suspect]
     Active Substance: METHOTREXATE
     Indication: Product used for unknown indication
  4. CALCIUM\CHOLECALCIFEROL [Concomitant]
     Active Substance: CALCIUM\CHOLECALCIFEROL
     Indication: Product used for unknown indication
  5. MAGNESIUM [Concomitant]
     Active Substance: MAGNESIUM
     Indication: Product used for unknown indication
  6. VITAMINS [Concomitant]
     Active Substance: VITAMINS
     Indication: Product used for unknown indication

REACTIONS (13)
  - Vaginal haemorrhage [Recovering/Resolving]
  - Papillary thyroid cancer [Recovered/Resolved]
  - Pancreatitis [Unknown]
  - Cholelithiasis [Unknown]
  - Iron deficiency anaemia [Unknown]
  - Discomfort [Unknown]
  - Fatigue [Unknown]
  - Arthralgia [Recovering/Resolving]
  - Dactylitis [Recovering/Resolving]
  - Laryngopharyngitis [Unknown]
  - Therapeutic response decreased [Unknown]
  - Food allergy [Unknown]
  - Lichen planus [Unknown]

NARRATIVE: CASE EVENT DATE: 20210401
